FAERS Safety Report 6356080-X (Version None)
Quarter: 2009Q3

REPORT INFORMATION
  Report Type: 
  Country: None (occurrence: None)
  Receive Date: 20090914
  Receipt Date: 20090914
  Transmission Date: 20100115
  Serious: Yes (Hospitalization)
  Sender: FDA-Public Use
  Company Number: None

PATIENT
  Sex: Female
  Weight: 56.2 kg

DRUGS (2)
  1. CARBOPLATIN [Suspect]
     Dosage: 560 MG
  2. TAXOL [Suspect]
     Dosage: 336 MG

REACTIONS (7)
  - ANAEMIA [None]
  - DEHYDRATION [None]
  - HYPOKALAEMIA [None]
  - OESOPHAGEAL STENOSIS [None]
  - OESOPHAGITIS [None]
  - PULMONARY EMBOLISM [None]
  - THROMBOCYTOPENIA [None]
